FAERS Safety Report 24312176 (Version 1)
Quarter: 2024Q3

REPORT INFORMATION
  Report Type: Spontaneous
  Country: US (occurrence: US)
  Receive Date: 20240912
  Receipt Date: 20240912
  Transmission Date: 20241016
  Serious: No
  Sender: TEVA
  Company Number: US-TEVA-VS-3237725

PATIENT
  Age: 22 Year
  Sex: Female

DRUGS (1)
  1. ESTROGENS [Suspect]
     Active Substance: ESTROGENS
     Indication: Product used for unknown indication
     Dosage: PILLS
     Route: 048

REACTIONS (4)
  - Vomiting [Unknown]
  - Drug ineffective [Unknown]
  - Retching [Unknown]
  - Drug intolerance [Unknown]
